FAERS Safety Report 26025047 (Version 1)
Quarter: 2025Q4

REPORT INFORMATION
  Report Type: Spontaneous
  Country: US (occurrence: US)
  Receive Date: 20251111
  Receipt Date: 20251111
  Transmission Date: 20260118
  Serious: No
  Sender: ELI LILLY AND COMPANY
  Company Number: US-ELI_LILLY_AND_COMPANY-US202510033405

PATIENT
  Age: 62 Year
  Sex: Female

DRUGS (24)
  1. ZEPBOUND [Suspect]
     Active Substance: TIRZEPATIDE
     Indication: Sleep apnoea syndrome
     Dosage: 2.5 MG, UNKNOWN
     Route: 065
     Dates: start: 20250806
  2. ZEPBOUND [Suspect]
     Active Substance: TIRZEPATIDE
     Indication: Sleep apnoea syndrome
     Dosage: 2.5 MG, UNKNOWN
     Route: 065
     Dates: start: 20250806
  3. ZEPBOUND [Suspect]
     Active Substance: TIRZEPATIDE
     Indication: Sleep apnoea syndrome
     Dosage: 2.5 MG, UNKNOWN
     Route: 065
     Dates: start: 20250806
  4. ZEPBOUND [Suspect]
     Active Substance: TIRZEPATIDE
     Indication: Sleep apnoea syndrome
     Dosage: 2.5 MG, UNKNOWN
     Route: 065
     Dates: start: 20250806
  5. ZEPBOUND [Suspect]
     Active Substance: TIRZEPATIDE
     Indication: Weight control
  6. ZEPBOUND [Suspect]
     Active Substance: TIRZEPATIDE
     Indication: Weight control
  7. ZEPBOUND [Suspect]
     Active Substance: TIRZEPATIDE
     Indication: Weight control
  8. ZEPBOUND [Suspect]
     Active Substance: TIRZEPATIDE
     Indication: Weight control
  9. ZEPBOUND [Suspect]
     Active Substance: TIRZEPATIDE
     Indication: Blood glucose abnormal
  10. ZEPBOUND [Suspect]
     Active Substance: TIRZEPATIDE
     Indication: Blood glucose abnormal
  11. ZEPBOUND [Suspect]
     Active Substance: TIRZEPATIDE
     Indication: Blood glucose abnormal
  12. ZEPBOUND [Suspect]
     Active Substance: TIRZEPATIDE
     Indication: Blood glucose abnormal
  13. ZEPBOUND [Suspect]
     Active Substance: TIRZEPATIDE
     Indication: Sleep apnoea syndrome
     Dosage: 5 MG, UNKNOWN
     Route: 065
  14. ZEPBOUND [Suspect]
     Active Substance: TIRZEPATIDE
     Indication: Sleep apnoea syndrome
     Dosage: 5 MG, UNKNOWN
     Route: 065
  15. ZEPBOUND [Suspect]
     Active Substance: TIRZEPATIDE
     Indication: Sleep apnoea syndrome
     Dosage: 5 MG, UNKNOWN
     Route: 065
  16. ZEPBOUND [Suspect]
     Active Substance: TIRZEPATIDE
     Indication: Sleep apnoea syndrome
     Dosage: 5 MG, UNKNOWN
     Route: 065
  17. ZEPBOUND [Suspect]
     Active Substance: TIRZEPATIDE
     Indication: Weight control
     Dosage: 7.5 MG, UNKNOWN
     Route: 065
  18. ZEPBOUND [Suspect]
     Active Substance: TIRZEPATIDE
     Indication: Weight control
     Dosage: 7.5 MG, UNKNOWN
     Route: 065
  19. ZEPBOUND [Suspect]
     Active Substance: TIRZEPATIDE
     Indication: Weight control
     Dosage: 7.5 MG, UNKNOWN
     Route: 065
  20. ZEPBOUND [Suspect]
     Active Substance: TIRZEPATIDE
     Indication: Weight control
     Dosage: 7.5 MG, UNKNOWN
     Route: 065
  21. ZEPBOUND [Suspect]
     Active Substance: TIRZEPATIDE
     Indication: Blood glucose abnormal
  22. ZEPBOUND [Suspect]
     Active Substance: TIRZEPATIDE
     Indication: Blood glucose abnormal
  23. ZEPBOUND [Suspect]
     Active Substance: TIRZEPATIDE
     Indication: Blood glucose abnormal
  24. ZEPBOUND [Suspect]
     Active Substance: TIRZEPATIDE
     Indication: Blood glucose abnormal

REACTIONS (5)
  - Product dose omission issue [Unknown]
  - Hunger [Unknown]
  - Gastrointestinal sounds abnormal [Unknown]
  - Nausea [Unknown]
  - Fatigue [Unknown]

NARRATIVE: CASE EVENT DATE: 20250806
